FAERS Safety Report 15689095 (Version 1)
Quarter: 2018Q4

REPORT INFORMATION
  Report Type: Spontaneous
  Country: US (occurrence: US)
  Receive Date: 20181204
  Receipt Date: 20181204
  Transmission Date: 20190205
  Serious: No
  Sender: FDA-Public Use
  Company Number: None

PATIENT
  Age: 23 Year
  Sex: Female
  Weight: 44.55 kg

DRUGS (1)
  1. ZYRTEC ALLERGY [Suspect]
     Active Substance: CETIRIZINE HYDROCHLORIDE
     Indication: MECHANICAL URTICARIA
     Dosage: ?          QUANTITY:50 TABLET(S);?
     Route: 048

REACTIONS (4)
  - Skin texture abnormal [None]
  - Withdrawal syndrome [None]
  - Urticaria [None]
  - Skin burning sensation [None]

NARRATIVE: CASE EVENT DATE: 20181204
